FAERS Safety Report 6953568-5 (Version None)
Quarter: 2010Q3

REPORT INFORMATION
  Report Type: 
  Country: None (occurrence: None)
  Receive Date: 20100829
  Receipt Date: 20100614
  Transmission Date: 20110219
  Serious: No
  Sender: FDA-Public Use
  Company Number: US-ABBOTT-10P-163-0651131-00

PATIENT
  Sex: Female
  Weight: 96.248 kg

DRUGS (9)
  1. NIASPAN [Suspect]
     Indication: LOW DENSITY LIPOPROTEIN INCREASED
     Dates: start: 20100611
  2. FISH OIL [Concomitant]
     Indication: PRODUCT USED FOR UNKNOWN INDICATION
  3. DETROL XL [Concomitant]
     Indication: PRODUCT USED FOR UNKNOWN INDICATION
  4. ENALAPRIL [Concomitant]
     Indication: PRODUCT USED FOR UNKNOWN INDICATION
  5. ESTRIOL [Concomitant]
     Indication: PRODUCT USED FOR UNKNOWN INDICATION
  6. NAPROXEN [Concomitant]
     Indication: PRODUCT USED FOR UNKNOWN INDICATION
  7. SINEMENT [Concomitant]
     Indication: PRODUCT USED FOR UNKNOWN INDICATION
  8. ASPIRIN [Concomitant]
     Indication: PRODUCT USED FOR UNKNOWN INDICATION
  9. TYLENOL-500 [Concomitant]
     Indication: PRODUCT USED FOR UNKNOWN INDICATION

REACTIONS (1)
  - FLUSHING [None]
